FAERS Safety Report 7812966-8 (Version None)
Quarter: 2011Q4

REPORT INFORMATION
  Report Type: 
  Country: None (occurrence: None)
  Receive Date: 20111013
  Receipt Date: 20111004
  Transmission Date: 20120403
  Serious: Yes (Hospitalization)
  Sender: FDA-Public Use
  Company Number: CA-ABBOTT-11P-028-0860837-00

PATIENT
  Sex: Female

DRUGS (5)
  1. XANAX [Concomitant]
     Indication: ANXIETY
     Route: 048
     Dates: start: 19910101
  2. PENTASA [Concomitant]
     Indication: CROHN'S DISEASE
     Route: 048
     Dates: start: 20110815
  3. HUMIRA [Suspect]
     Indication: CROHN'S DISEASE
     Route: 058
     Dates: start: 20110712
  4. ENTOCORT EC [Concomitant]
     Indication: CROHN'S DISEASE
     Route: 048
     Dates: start: 20080601
  5. XANAX [Concomitant]
     Indication: DEPRESSION

REACTIONS (3)
  - CROHN'S DISEASE [None]
  - ANXIETY [None]
  - BEREAVEMENT [None]
